FAERS Safety Report 7908361-3 (Version None)
Quarter: 2011Q4

REPORT INFORMATION
  Report Type: 
  Country: None (occurrence: None)
  Receive Date: 20111111
  Receipt Date: 20111027
  Transmission Date: 20120403
  Serious: Yes (Congenital Anomaly)
  Sender: FDA-Public Use
  Company Number: CA-JNJFOC-20111101933

PATIENT
  Sex: Male

DRUGS (2)
  1. REMICADE [Suspect]
     Indication: FOETAL EXPOSURE DURING PREGNANCY
     Route: 064
     Dates: start: 20061207
  2. REMICADE [Suspect]
     Indication: EXPOSURE DURING BREAST FEEDING
     Route: 064
     Dates: start: 20061207

REACTIONS (1)
  - HYPOSPADIAS [None]
